FAERS Safety Report 6317563-1 (Version None)
Quarter: 2009Q3

REPORT INFORMATION
  Report Type: 
  Country: None (occurrence: None)
  Receive Date: 20090821
  Receipt Date: 20090810
  Transmission Date: 20100115
  Serious: Yes (Death, Other)
  Sender: FDA-Public Use
  Company Number: BR-ROCHE-650040

PATIENT
  Age: 50 Year
  Sex: Male

DRUGS (1)
  1. TAMIFLU [Suspect]
     Route: 065
     Dates: start: 20090801, end: 20090801

REACTIONS (3)
  - DEATH [None]
  - DRUG INEFFECTIVE [None]
  - PNEUMONIA [None]
